FAERS Safety Report 20652873 (Version 3)
Quarter: 2022Q2

REPORT INFORMATION
  Report Type: Spontaneous
  Country: IT (occurrence: IT)
  Receive Date: 20220330
  Receipt Date: 20220511
  Transmission Date: 20220721
  Serious: Yes (Other)
  Sender: FDA-Public Use
  Company Number: IT-MYLANLABS-2022M1022931

PATIENT
  Age: 75 Year
  Sex: Female

DRUGS (5)
  1. LISINOPRIL [Suspect]
     Active Substance: LISINOPRIL
     Indication: Hypertension
     Dosage: 20 MILLIGRAM, QD
     Route: 048
  2. SIMVASTATIN [Suspect]
     Active Substance: SIMVASTATIN
     Indication: Hypercholesterolaemia
     Dosage: 10 MILLIGRAM, QD
     Route: 048
  3. TIMOLOL [Suspect]
     Active Substance: TIMOLOL
     Indication: Glaucoma
     Dosage: UNK
     Route: 031
  4. TIMOLOL [Suspect]
     Active Substance: TIMOLOL
     Dosage: UNK,OPHTHALMIC
     Route: 047
  5. APIXABAN [Concomitant]
     Active Substance: APIXABAN
     Dosage: 10 MILLIGRAM, QD

REACTIONS (1)
  - Pulmonary embolism [Unknown]
